FAERS Safety Report 8716136 (Version 4)
Quarter: 2013Q1

REPORT INFORMATION
  Report Type: Spontaneous
  Country: JP (occurrence: JP)
  Receive Date: 20120809
  Receipt Date: 20130226
  Transmission Date: 20140127
  Serious: Yes (Hospitalization)
  Sender: FDA-Public Use
  Company Number: PHHY2012JP068609

PATIENT
  Age: 70 Year
  Sex: Male

DRUGS (2)
  1. NEORAL [Suspect]
     Indication: GLOMERULONEPHRITIS MEMBRANOUS
  2. PREDNISOLONE [Concomitant]
     Indication: GLOMERULONEPHRITIS MEMBRANOUS
     Dosage: 40 MG, UNK
     Route: 048

REACTIONS (5)
  - Vessel perforation [Recovered/Resolved]
  - Pneumonia staphylococcal [Recovered/Resolved]
  - Staphylococcal sepsis [Recovered/Resolved]
  - Localised infection [Recovered/Resolved]
  - Pyrexia [Recovered/Resolved]
